FAERS Safety Report 8363860-8 (Version None)
Quarter: 2012Q2

REPORT INFORMATION
  Report Type: 
  Country: None (occurrence: None)
  Receive Date: 20120516
  Receipt Date: 20120106
  Transmission Date: 20120825
  Serious: Yes (Other)
  Sender: FDA-Public Use
  Company Number: US-ALEXION-A201200042

PATIENT
  Sex: Female

DRUGS (14)
  1. CLONIDINE [Concomitant]
     Indication: HYPERTENSION
     Dosage: UNK
  2. AMBIEN CR [Concomitant]
     Indication: INSOMNIA
     Dosage: UNK
  3. SOLIRIS [Suspect]
     Dosage: 900 MG, Q2W
     Route: 042
     Dates: start: 20111201
  4. HYDRALAZINE HCL [Concomitant]
     Indication: HYPERTENSION
     Dosage: UNK
  5. KLOR-CON [Concomitant]
     Indication: SUPPLEMENTATION THERAPY
     Dosage: UNK
  6. NORVASC [Concomitant]
     Indication: HYPERTENSION
     Dosage: UNK
  7. CEPHALEXINE [Concomitant]
     Indication: PROPHYLAXIS
     Dosage: UNK
  8. LASIX [Concomitant]
     Indication: FLUID RETENTION
     Dosage: UNK
  9. SOLIRIS [Suspect]
     Indication: HAEMOLYTIC URAEMIC SYNDROME
     Dosage: 600 MG, QW
     Route: 042
     Dates: start: 20111121, end: 20111201
  10. IRON [Concomitant]
     Indication: SUPPLEMENTATION THERAPY
     Dosage: UNK
  11. RENAGEL [Concomitant]
     Indication: BLOOD PHOSPHORUS INCREASED
     Dosage: UNK
  12. METOPROLOL TARTRATE [Concomitant]
     Indication: HYPERTENSION
     Dosage: UNK
  13. ALLEGRA [Concomitant]
     Indication: PROPHYLAXIS
     Dosage: UNK
  14. EFFEXOR XR [Concomitant]
     Indication: DEPRESSION
     Dosage: UNK

REACTIONS (2)
  - LOSS OF CONSCIOUSNESS [None]
  - DIZZINESS [None]
